FAERS Safety Report 7408084-3 (Version None)
Quarter: 2011Q2

REPORT INFORMATION
  Report Type: 
  Country: None (occurrence: None)
  Receive Date: 20110408
  Receipt Date: 20110408
  Transmission Date: 20111010
  Serious: Yes (Death)
  Sender: FDA-Public Use
  Company Number: None

PATIENT
  Age: 74 Year
  Sex: Male
  Weight: 101 kg

DRUGS (1)
  1. WARFARIN SODIUM [Suspect]

REACTIONS (5)
  - INTERNATIONAL NORMALISED RATIO INCREASED [None]
  - CARDIOMYOPATHY [None]
  - CARDIAC DEATH [None]
  - CARDIAC FAILURE [None]
  - EMBOLISM ARTERIAL [None]
